FAERS Safety Report 21699640 (Version 6)
Quarter: 2022Q4

REPORT INFORMATION
  Report Type: Report from Study
  Country: JP (occurrence: JP)
  Receive Date: 20221208
  Receipt Date: 20221228
  Transmission Date: 20230112
  Serious: Yes (Hospitalization)
  Sender: FDA-Public Use
  Company Number: JP-002147023-NVSC2022JP282489

PATIENT
  Age: 74 Year
  Sex: Female

DRUGS (34)
  1. ILARIS [Suspect]
     Active Substance: CANAKINUMAB
     Indication: Still^s disease
     Dosage: 1.25 ML, Q4W
     Route: 058
     Dates: start: 20211013, end: 20221109
  2. PREDNISOLONE [Suspect]
     Active Substance: PREDNISOLONE
     Indication: Still^s disease
     Dosage: 18 MG/DAY
     Route: 065
     Dates: start: 20220428, end: 20220622
  3. PREDNISOLONE [Suspect]
     Active Substance: PREDNISOLONE
     Dosage: 17 MG/DAY
     Route: 065
     Dates: start: 20220623, end: 20220720
  4. PREDNISOLONE [Suspect]
     Active Substance: PREDNISOLONE
     Dosage: 18 MG/DAY
     Route: 065
     Dates: start: 20220721, end: 20221012
  5. PREDNISOLONE [Suspect]
     Active Substance: PREDNISOLONE
     Dosage: 17 MG/DAY
     Route: 065
     Dates: start: 20221013, end: 20221125
  6. FEXOFENADINE HYDROCHLORIDE [Concomitant]
     Active Substance: FEXOFENADINE HYDROCHLORIDE
     Indication: Still^s disease
     Dosage: UNK (OD)
     Route: 065
     Dates: start: 20210921, end: 20221127
  7. HEPARINOID [Concomitant]
     Indication: Dry skin
     Dosage: UNK
     Route: 065
     Dates: start: 20210906
  8. AZUNOL [Concomitant]
     Indication: Still^s disease
     Dosage: UNK (GARGLE LIQUID)
     Route: 065
     Dates: start: 20210905
  9. AZUNOL [Concomitant]
     Indication: Dry skin
     Dosage: OINTMENT
     Route: 065
     Dates: start: 20210924
  10. ACETAMINOPHEN [Concomitant]
     Active Substance: ACETAMINOPHEN
     Indication: Still^s disease
     Dosage: UNK
     Route: 065
     Dates: start: 20210905, end: 20221127
  11. CAMPHOR\CAPSICUM\METHYL SALICYLATE [Concomitant]
     Active Substance: CAMPHOR\CAPSICUM\METHYL SALICYLATE
     Indication: Sciatica
     Dosage: UNK
     Route: 065
     Dates: start: 20220105
  12. LECICARBON [Concomitant]
     Indication: Constipation
     Dosage: UNK
     Route: 065
     Dates: start: 20220330
  13. SHAKUYAKUKANZOTO [Concomitant]
     Active Substance: HERBALS
     Indication: Pain
     Dosage: UNK
     Route: 065
     Dates: start: 20220817, end: 20221127
  14. AMITIZA [Concomitant]
     Active Substance: LUBIPROSTONE
     Indication: Constipation
     Dosage: UNK
     Route: 065
     Dates: start: 20220623
  15. MAGNESIUM OXIDE [Concomitant]
     Active Substance: MAGNESIUM OXIDE
     Indication: Constipation
     Dosage: UNK
     Route: 065
     Dates: start: 20220427
  16. BISACODYL [Concomitant]
     Active Substance: BISACODYL
     Indication: Constipation
     Dosage: UNK
     Route: 065
     Dates: start: 20221124
  17. AMPICILLIN SODIUM\SULBACTAM SODIUM [Concomitant]
     Active Substance: AMPICILLIN SODIUM\SULBACTAM SODIUM
     Indication: Cellulitis
     Dosage: UNK
     Route: 065
     Dates: start: 20221124, end: 20221125
  18. AMPICILLIN SODIUM\SULBACTAM SODIUM [Concomitant]
     Active Substance: AMPICILLIN SODIUM\SULBACTAM SODIUM
     Dosage: UNK
     Route: 065
     Dates: start: 20221206, end: 20221209
  19. LOXOPROFEN SODIUM [Concomitant]
     Active Substance: LOXOPROFEN SODIUM
     Indication: Periodontitis
     Dosage: UNK
     Route: 065
     Dates: start: 20221114
  20. SOLITA-T 3G [Concomitant]
     Indication: Hydrotherapy
     Dosage: UNK
     Route: 065
     Dates: start: 20221124, end: 20221124
  21. PIPERACILLIN SODIUM\TAZOBACTAM SODIUM [Concomitant]
     Active Substance: PIPERACILLIN SODIUM\TAZOBACTAM SODIUM
     Indication: Cellulitis
     Dosage: UNK
     Route: 065
     Dates: start: 20221126, end: 20221128
  22. VANCOMYCIN [Concomitant]
     Active Substance: VANCOMYCIN
     Indication: Cellulitis
     Dosage: UNK
     Route: 065
     Dates: start: 20221126, end: 20221201
  23. AMINO ACIDS\DEXTROSE\ELECTROLYTES NOS\VITAMINS [Concomitant]
     Active Substance: AMINO ACIDS\DEXTROSE\ELECTROLYTES NOS\VITAMINS
     Indication: Hydrotherapy
     Dosage: UNK
     Route: 065
     Dates: start: 20221124, end: 20221127
  24. ACETAMINOPHEN [Concomitant]
     Active Substance: ACETAMINOPHEN
     Indication: Cellulitis
     Dosage: UNK
     Route: 065
     Dates: start: 20221127, end: 20221129
  25. MEROPENEM [Concomitant]
     Active Substance: MEROPENEM
     Indication: Cellulitis
     Dosage: UNK
     Route: 065
     Dates: start: 20221128, end: 20221205
  26. LOCOID [Concomitant]
     Active Substance: HYDROCORTISONE BUTYRATE
     Indication: Dry skin
     Dosage: UNK
     Route: 065
     Dates: start: 20221109
  27. AMLODIPINE [Concomitant]
     Active Substance: AMLODIPINE BESYLATE
     Indication: Hypertension
     Dosage: UNK (OD)
     Route: 065
     Dates: start: 1997
  28. URSODIOL [Concomitant]
     Active Substance: URSODIOL
     Indication: Liver disorder
     Dosage: UNK
     Route: 065
     Dates: start: 20201006, end: 20221127
  29. TRAVELMIN [Concomitant]
     Indication: Vertigo positional
     Dosage: UNK
     Route: 065
     Dates: start: 20201211, end: 20221127
  30. ATOVAQUONE [Concomitant]
     Active Substance: ATOVAQUONE
     Indication: Infection prophylaxis
     Dosage: UNK
     Route: 065
     Dates: start: 20201021, end: 20221126
  31. FAMOTIDINE [Concomitant]
     Active Substance: FAMOTIDINE
     Indication: Gastric ulcer
     Dosage: UNK (OD)
     Route: 065
     Dates: start: 20201215
  32. AUGMENTIN [Concomitant]
     Active Substance: AMOXICILLIN\CLAVULANATE POTASSIUM
     Indication: Cellulitis
     Dosage: UNK
     Route: 065
     Dates: start: 20221209
  33. AMOXICILLIN [Concomitant]
     Active Substance: AMOXICILLIN
     Indication: Cellulitis
     Dosage: UNK
     Route: 065
     Dates: start: 20221209
  34. XYLOCAINE [Concomitant]
     Active Substance: LIDOCAINE HYDROCHLORIDE
     Indication: Product used for unknown indication
     Dosage: UNK
     Route: 065
     Dates: start: 20221121, end: 20221121

REACTIONS (1)
  - Osteomyelitis [Recovering/Resolving]

NARRATIVE: CASE EVENT DATE: 20221124
